FAERS Safety Report 23749315 (Version 6)
Quarter: 2025Q1

REPORT INFORMATION
  Report Type: Spontaneous
  Country: US (occurrence: US)
  Receive Date: 20240416
  Receipt Date: 20250327
  Transmission Date: 20250408
  Serious: No
  Sender: SANOFI AVENTIS
  Company Number: US-SA-SAC20240410000739

PATIENT
  Age: 65 Year
  Sex: Female
  Weight: 87.49 kg

DRUGS (16)
  1. DUPIXENT [Suspect]
     Active Substance: DUPILUMAB
     Indication: Dermatitis atopic
     Dosage: 300 MG, QOW
     Route: 058
  2. REZDIFFRA [Concomitant]
     Active Substance: RESMETIROM
  3. REZDIFFRA [Concomitant]
     Active Substance: RESMETIROM
  4. MOUNJARO [Concomitant]
     Active Substance: TIRZEPATIDE
     Route: 065
  5. IBUPROFEN [Concomitant]
     Active Substance: IBUPROFEN
  6. TRIAMCINOLONE ACETONIDE [Concomitant]
     Active Substance: TRIAMCINOLONE ACETONIDE
  7. TRIAMCINOLONE ACETONIDE [Concomitant]
     Active Substance: TRIAMCINOLONE ACETONIDE
  8. VITAMIN D3 [Concomitant]
     Active Substance: CHOLECALCIFEROL
  9. TRULICITY [Concomitant]
     Active Substance: DULAGLUTIDE
  10. TRULICITY [Concomitant]
     Active Substance: DULAGLUTIDE
  11. METFORMIN HYDROCHLORIDE [Concomitant]
     Active Substance: METFORMIN HYDROCHLORIDE
  12. GABAPENTIN [Concomitant]
     Active Substance: GABAPENTIN
  13. ALPRAZOLAM [Concomitant]
     Active Substance: ALPRAZOLAM
  14. LOSARTAN POTASSIUM [Concomitant]
     Active Substance: LOSARTAN POTASSIUM
  15. ANASTROZOLE [Concomitant]
     Active Substance: ANASTROZOLE
  16. FAMOTIDINE [Concomitant]
     Active Substance: FAMOTIDINE

REACTIONS (12)
  - Blister [Not Recovered/Not Resolved]
  - Rash macular [Not Recovered/Not Resolved]
  - Nausea [Recovering/Resolving]
  - Tinnitus [Recovering/Resolving]
  - Hot flush [Not Recovered/Not Resolved]
  - Abdominal pain [Not Recovered/Not Resolved]
  - Constipation [Not Recovered/Not Resolved]
  - Pruritus [Not Recovered/Not Resolved]
  - Diarrhoea [Not Recovered/Not Resolved]
  - Injection site pain [Unknown]
  - Accidental exposure to product [Unknown]
  - Exposure via skin contact [Unknown]

NARRATIVE: CASE EVENT DATE: 20240401
